FAERS Safety Report 6996954-X (Version None)
Quarter: 2010Q3

REPORT INFORMATION
  Report Type: 
  Country: None (occurrence: None)
  Receive Date: 20100918
  Receipt Date: 20090921
  Transmission Date: 20110219
  Serious: No
  Sender: FDA-Public Use
  Company Number: US-WYE-H10696209

PATIENT
  Sex: Female
  Weight: 51.3 kg

DRUGS (3)
  1. PRISTIQ [Suspect]
     Route: 048
     Dates: start: 20080617
  2. PRISTIQ [Suspect]
     Dosage: TAPERING OFF, DOWN TO Q3 DAYS
     Route: 048
  3. AMPHETAMINE ASPARTATE/AMPHETAMINE SULFATE/DEXTROAMPHETAMINE SACCHARATE [Concomitant]

REACTIONS (2)
  - DRUG WITHDRAWAL SYNDROME [None]
  - DYSKINESIA [None]
